FAERS Safety Report 8465633-4 (Version None)
Quarter: 2012Q2

REPORT INFORMATION
  Report Type: 
  Country: None (occurrence: None)
  Receive Date: 20120626
  Receipt Date: 20120618
  Transmission Date: 20120825
  Serious: Yes (Hospitalization)
  Sender: FDA-Public Use
  Company Number: US-BAYER-2012-062048

PATIENT
  Age: 35 Year
  Sex: Female
  Weight: 82 kg

DRUGS (7)
  1. HYDROCODONE BITARTRATE + ACETAMINOPHEN [Concomitant]
     Indication: PAIN MANAGEMENT
     Dosage: UNK
     Dates: start: 20110610
  2. DROSPIRENONE AND ETHINYL ESTRADIOL [Suspect]
  3. DROSPIRENONE AND ETHINYL ESTRADIOL [Suspect]
  4. YAZ [Suspect]
  5. DIAZEPAM [Concomitant]
     Dosage: 5 MG, UNK
     Dates: start: 20110610
  6. YASMIN [Suspect]
  7. NAPROSYN [Concomitant]

REACTIONS (1)
  - PULMONARY EMBOLISM [None]
